FAERS Safety Report 15479514 (Version 1)
Quarter: 2018Q4

REPORT INFORMATION
  Report Type: Spontaneous
  Country: DE (occurrence: DE)
  Receive Date: 20181009
  Receipt Date: 20181009
  Transmission Date: 20190205
  Serious: Yes (Other)
  Sender: FDA-Public Use
  Company Number: DE-MYLANLABS-2018M1074193

PATIENT

DRUGS (3)
  1. ETOPOSIDE. [Suspect]
     Active Substance: ETOPOSIDE
     Indication: EWING^S SARCOMA
     Dosage: 1 DF, UNK
     Route: 065
  2. SORAFENIB [Suspect]
     Active Substance: SORAFENIB
     Indication: EWING^S SARCOMA
     Dosage: 400 MG, UNK
     Route: 048
  3. CRIZOTINIB [Suspect]
     Active Substance: CRIZOTINIB
     Indication: EWING^S SARCOMA
     Dosage: 400 MG, UNK
     Route: 048

REACTIONS (1)
  - Malignant neoplasm progression [Unknown]
